FAERS Safety Report 7047236-1 (Version None)
Quarter: 2010Q4

REPORT INFORMATION
  Report Type: 
  Country: None (occurrence: None)
  Receive Date: 20101015
  Receipt Date: 20101011
  Transmission Date: 20110411
  Serious: Yes (Death, Hospitalization)
  Sender: FDA-Public Use
  Company Number: GB-CELGENEUS-167-21880-10082393

PATIENT
  Sex: Male

DRUGS (15)
  1. REVLIMID [Suspect]
     Route: 048
     Dates: start: 20090817, end: 20091208
  2. CLEXANE [Concomitant]
     Indication: THROMBOSIS PROPHYLAXIS
     Route: 058
     Dates: start: 20090817, end: 20091201
  3. DEXAMETHASONE [Concomitant]
     Indication: PRODUCT USED FOR UNKNOWN INDICATION
     Route: 065
     Dates: start: 20090817, end: 20091208
  4. CALCIUM-D3 [Concomitant]
     Route: 065
     Dates: start: 20091106, end: 20091208
  5. METFORMIN [Concomitant]
     Route: 065
  6. OXYCONTIN [Concomitant]
     Indication: PAIN
     Route: 065
  7. AMITRIPTYLINE HCL [Concomitant]
     Indication: PAIN
     Route: 065
  8. AMLODIPINE [Concomitant]
     Route: 065
  9. FUROSEMIDE [Concomitant]
     Route: 065
  10. OMEPRAZOLE [Concomitant]
     Route: 065
  11. GABAPENTIN [Concomitant]
     Indication: PAIN
     Route: 065
  12. DIGOXIN [Concomitant]
     Indication: ATRIAL FIBRILLATION
     Route: 065
  13. PERINDOPRIL [Concomitant]
     Route: 065
  14. BISOPROLOL [Concomitant]
     Route: 065
  15. SANDO K [Concomitant]
     Route: 065
     Dates: start: 20091023

REACTIONS (3)
  - ACUTE CORONARY SYNDROME [None]
  - MULTIPLE MYELOMA [None]
  - PNEUMONIA [None]
